FAERS Safety Report 13402472 (Version 1)
Quarter: 2017Q2

REPORT INFORMATION
  Report Type: Spontaneous
  Country: FR (occurrence: FR)
  Receive Date: 20170404
  Receipt Date: 20170404
  Transmission Date: 20170830
  Serious: Yes (Hospitalization)
  Sender: FDA-Public Use
  Company Number: FR-INGENUS PHARMACEUTICALS NJ, LLC-ING201703-000170

PATIENT
  Age: 34 Year
  Sex: Male
  Weight: 62 kg

DRUGS (20)
  1. LYSINE ACETYLSALICYLATE [Concomitant]
     Active Substance: ASPIRIN LYSINE
     Indication: CORONARY ARTERY DISEASE
  2. PANCREATIN [Concomitant]
     Active Substance: PANCRELIPASE
  3. FERROUS ASCORBATE [Concomitant]
     Active Substance: FERROUS ASCORBATE
  4. PROBENECID AND COLCHICINE [Suspect]
     Active Substance: COLCHICINE\PROBENECID
     Indication: GOUT
     Dates: start: 20091020, end: 20091021
  5. EVEROLIMUS [Concomitant]
     Active Substance: EVEROLIMUS
  6. ALPHA TOCOPHEROL [Concomitant]
  7. ESOMEPRAZOLE [Concomitant]
     Active Substance: ESOMEPRAZOLE
  8. PROBENECID AND COLCHICINE [Suspect]
     Active Substance: COLCHICINE\PROBENECID
     Dates: start: 20091023, end: 20091028
  9. AZITHROMYCIN ANHYDROUS. [Suspect]
     Active Substance: AZITHROMYCIN ANHYDROUS
     Indication: BRONCHIOLITIS
  10. CALCIUM [Concomitant]
     Active Substance: CALCIUM
  11. CYCLOSPORIN A [Suspect]
     Active Substance: CYCLOSPORINE
  12. IRBESARTAN. [Concomitant]
     Active Substance: IRBESARTAN
     Indication: CORONARY ARTERY DISEASE
  13. COLIMYCIN [Concomitant]
     Active Substance: COLISTIMETHATE SODIUM
     Indication: LUNG TRANSPLANT
  14. PRAVASTATIN. [Suspect]
     Active Substance: PRAVASTATIN
     Indication: CORONARY ARTERY DISEASE
  15. COLIMYCIN [Concomitant]
     Active Substance: COLISTIMETHATE SODIUM
     Indication: BRONCHIOLITIS
  16. CHOLECALCIFEROL [Concomitant]
     Active Substance: CHOLECALCIFEROL
  17. PROBENECID AND COLCHICINE [Suspect]
     Active Substance: COLCHICINE\PROBENECID
     Dates: start: 20091021, end: 20091023
  18. HYDROCORTISONE. [Concomitant]
     Active Substance: HYDROCORTISONE
  19. NICORANDIL [Concomitant]
     Active Substance: NICORANDIL
     Indication: CORONARY ARTERY DISEASE
  20. COTRIMOXAZOLE [Concomitant]
     Active Substance: SULFAMETHOXAZOLE\TRIMETHOPRIM

REACTIONS (14)
  - Drug interaction [Unknown]
  - Lymphopenia [Unknown]
  - Diarrhoea [Unknown]
  - Cough [Unknown]
  - Chronic kidney disease [Recovered/Resolved]
  - Acute respiratory failure [Recovered/Resolved]
  - Haemoptysis [Unknown]
  - Toxicity to various agents [Recovered/Resolved]
  - Drug intolerance [Unknown]
  - Left ventricular failure [Unknown]
  - Rhabdomyolysis [Recovered/Resolved]
  - Multiple organ dysfunction syndrome [Unknown]
  - Leukocytosis [Unknown]
  - Hepatocellular injury [Unknown]
